FAERS Safety Report 6409943-0 (Version None)
Quarter: 2009Q4

REPORT INFORMATION
  Report Type: 
  Country: None (occurrence: None)
  Receive Date: 20091021
  Receipt Date: 20091021
  Transmission Date: 20100525
  Serious: Yes (Other)
  Sender: FDA-Public Use
  Company Number: None

PATIENT
  Age: 27 Year
  Sex: Female
  Weight: 53.5244 kg

DRUGS (1)
  1. ZICAM COLD REMEDY NASAL GEL ZICAM [Suspect]
     Indication: NASOPHARYNGITIS
     Dosage: 15ML 5-10 TIMES NASAL
     Route: 045
     Dates: start: 20070901, end: 20090430

REACTIONS (1)
  - ANOSMIA [None]
